FAERS Safety Report 19267329 (Version 2)
Quarter: 2025Q1

REPORT INFORMATION
  Report Type: Report from Study
  Country: US (occurrence: US)
  Receive Date: 20210517
  Receipt Date: 20250122
  Transmission Date: 20250408
  Serious: No
  Sender: TAKEDA
  Company Number: US-TAKEDA-US201923853

PATIENT
  Sex: Female

DRUGS (4)
  1. TEDUGLUTIDE [Suspect]
     Active Substance: TEDUGLUTIDE
     Indication: Short-bowel syndrome
     Dosage: UNK UNK, QD
  2. TEDUGLUTIDE [Suspect]
     Active Substance: TEDUGLUTIDE
     Dosage: 2.6 MILLIGRAM, QD
     Dates: start: 20190516, end: 20210404
  3. TEDUGLUTIDE [Suspect]
     Active Substance: TEDUGLUTIDE
     Dosage: 2.7 MILLIGRAM, QD
  4. TEDUGLUTIDE [Suspect]
     Active Substance: TEDUGLUTIDE

REACTIONS (3)
  - Malaise [Recovered/Resolved]
  - Vomiting [Recovered/Resolved]
  - Product storage error [Unknown]
